FAERS Safety Report 9695077 (Version 1)
Quarter: 2013Q4

REPORT INFORMATION
  Report Type: Report from Study
  Country: BR (occurrence: BR)
  Receive Date: 20131119
  Receipt Date: 20131119
  Transmission Date: 20140711
  Serious: Yes (Hospitalization, Other)
  Sender: FDA-Public Use
  Company Number: PHHY2013BR130715

PATIENT
  Sex: Female
  Weight: 64 kg

DRUGS (15)
  1. EXELON [Suspect]
     Indication: DEMENTIA ALZHEIMER^S TYPE
     Dosage: 1.5 MG, DAILY
     Dates: start: 20130815, end: 20130915
  2. EXELON [Suspect]
     Dosage: 4.5 MG, DAILY
     Dates: start: 20131014, end: 20131108
  3. EXELON [Suspect]
     Dosage: UNK UKN, UNK (DURING HOSPITALIZATION)
  4. EXELON PATCH [Suspect]
     Indication: DEMENTIA ALZHEIMER^S TYPE
     Dosage: 1 DF, DAILY
     Route: 062
     Dates: start: 20130915, end: 201309
  5. EXELON PATCH [Suspect]
     Dosage: 1 DF, DAILY
     Route: 062
     Dates: start: 20131109
  6. EXELON PATCH [Suspect]
     Dosage: 1 DF, DAILY
     Route: 062
  7. RISPERIDONE [Concomitant]
     Dosage: UNK UKN, UNK
     Dates: start: 201308
  8. SYNTHROID [Concomitant]
     Dosage: UNK UKN, UNK
  9. VALSARTAN [Concomitant]
     Dosage: UNK UKN, UNK
  10. NATRILIX [Concomitant]
     Indication: HYPERTENSION
     Dosage: UNK UKN, UNK
  11. CORDAREX [Concomitant]
     Dosage: UNK UKN, UNK
     Dates: start: 201309
  12. ZOLOFT [Concomitant]
     Dosage: UNK UKN, UNK
  13. OSCAL D                            /07451701/ [Concomitant]
     Dosage: UNK UKN, UNK
  14. SIMVASTATIN [Concomitant]
     Dosage: UNK UKN, UNK
  15. DALMADORM [Concomitant]
     Dosage: UNK UKN, UNK

REACTIONS (6)
  - Constipation [Unknown]
  - Malaise [Unknown]
  - Pneumonia [Unknown]
  - Drug intolerance [Unknown]
  - Asthenia [Unknown]
  - Vomiting [Recovering/Resolving]
